FAERS Safety Report 16532152 (Version 2)
Quarter: 2019Q3

REPORT INFORMATION
  Report Type: Spontaneous
  Country: US (occurrence: US)
  Receive Date: 20190705
  Receipt Date: 20190718
  Transmission Date: 20191004
  Serious: No
  Sender: FDA-Public Use
  Company Number: US-HORIZON-VIM-0263-2019

PATIENT
  Age: 39 Year
  Sex: Female

DRUGS (2)
  1. SYNTHROID [Concomitant]
     Active Substance: LEVOTHYROXINE SODIUM
  2. VIMOVO [Suspect]
     Active Substance: ESOMEPRAZOLE MAGNESIUM\NAPROXEN
     Indication: OSTEOARTHRITIS
     Dosage: 1 TAB BID

REACTIONS (1)
  - Diarrhoea [Recovered/Resolved]
